FAERS Safety Report 11170712 (Version 2)
Quarter: 2015Q3

REPORT INFORMATION
  Report Type: Spontaneous
  Country: US (occurrence: US)
  Receive Date: 20150608
  Receipt Date: 20150720
  Transmission Date: 20151125
  Serious: Yes (Other)
  Sender: FDA-Public Use
  Company Number: US-AUROBINDO-AUR-APL-2015-04910

PATIENT
  Sex: Male

DRUGS (1)
  1. FINASTERIDE TABLETS USP 5MG [Suspect]
     Active Substance: FINASTERIDE
     Indication: POLLAKIURIA
     Dosage: 5 MG, UNK
     Route: 065

REACTIONS (3)
  - Drug ineffective [Not Recovered/Not Resolved]
  - Neoplasm malignant [Not Recovered/Not Resolved]
  - Prostatic specific antigen decreased [Not Recovered/Not Resolved]
